FAERS Safety Report 9404483 (Version 1)
Quarter: 2013Q3

REPORT INFORMATION
  Report Type: Spontaneous
  Country: US (occurrence: None)
  Receive Date: 20130711
  Receipt Date: 20130711
  Transmission Date: 20140515
  Serious: Yes (Death)
  Sender: FDA-Public Use
  Company Number: UTC-035016

PATIENT
  Age: 83 Year
  Sex: Female
  Weight: 62.2 kg

DRUGS (1)
  1. REMODULIN [Suspect]
     Indication: COR PULMONALE CHRONIC
     Dosage: (0.061 UG/KG, 1 IN 1 MIN)
     Route: 058
     Dates: start: 20090331

REACTIONS (1)
  - Death [None]
